FAERS Safety Report 18731043 (Version 1)
Quarter: 2021Q1

REPORT INFORMATION
  Report Type: Spontaneous
  Country: US (occurrence: US)
  Receive Date: 20210112
  Receipt Date: 20210112
  Transmission Date: 20210419
  Serious: Yes (Hospitalization, Other)
  Sender: FDA-Public Use
  Company Number: US-HETERO-HET2021US00008

PATIENT
  Age: 71 Year
  Sex: Female

DRUGS (2)
  1. VALACYCLOVIR [Suspect]
     Active Substance: VALACYCLOVIR HYDROCHLORIDE
     Indication: HERPES OPHTHALMIC
     Dosage: 1000 MG, TID
     Route: 065
  2. ACYCLOVIR. [Suspect]
     Active Substance: ACYCLOVIR
     Indication: HERPES OPHTHALMIC
     Dosage: 200 MG, BID
     Route: 065

REACTIONS (2)
  - Neurotoxicity [Recovered/Resolved]
  - Drug level increased [Recovered/Resolved]
